FAERS Safety Report 7196984-1 (Version None)
Quarter: 2010Q4

REPORT INFORMATION
  Report Type: 
  Country: None (occurrence: None)
  Receive Date: 20101224
  Receipt Date: 20101215
  Transmission Date: 20110411
  Serious: Yes (Hospitalization)
  Sender: FDA-Public Use
  Company Number: JP-PFIZER INC-2010172149

PATIENT
  Age: 17 Year
  Sex: Male

DRUGS (1)
  1. SALAZOPYRIN [Suspect]
     Indication: COLITIS ULCERATIVE
     Dosage: UNK

REACTIONS (2)
  - EOSINOPHILIC PNEUMONIA [None]
  - PERTUSSIS [None]
